FAERS Safety Report 9240316 (Version 1)
Quarter: 2013Q2

REPORT INFORMATION
  Report Type: Spontaneous
  Country: US (occurrence: US)
  Receive Date: 20130418
  Receipt Date: 20130418
  Transmission Date: 20140414
  Serious: No
  Sender: FDA-Public Use
  Company Number: US-SANOFI-AVENTIS-2012SA051285

PATIENT
  Age: 59 Year
  Sex: Female

DRUGS (1)
  1. ENOXAPARIN SODIUM - WINTHROP [Suspect]
     Indication: THROMBOSIS
     Dosage: DOSAGE:TAKES 105MG OR 0.7ML FROM A 120MG/0.8ML SYRINGE.
     Route: 051
     Dates: start: 201205

REACTIONS (2)
  - Headache [Not Recovered/Not Resolved]
  - Vision blurred [Recovered/Resolved]
